FAERS Safety Report 8045198-1 (Version None)
Quarter: 2012Q1

REPORT INFORMATION
  Report Type: 
  Country: None (occurrence: None)
  Receive Date: 20120113
  Receipt Date: 20110711
  Transmission Date: 20120608
  Serious: Yes (Hospitalization)
  Sender: FDA-Public Use
  Company Number: DE-ASTRAZENECA-2011SE39191

PATIENT
  Age: 58 Year
  Sex: Male

DRUGS (16)
  1. SERTRALINE HYDROCHLORIDE [Suspect]
     Route: 048
     Dates: start: 20100713, end: 20100804
  2. SERTRALINE HYDROCHLORIDE [Suspect]
     Route: 048
     Dates: start: 20100807
  3. SEROQUEL XR [Suspect]
     Dosage: 200-600 MG
     Route: 048
     Dates: start: 20100522, end: 20100602
  4. SEROQUEL XR [Suspect]
     Dosage: 600-100 MG
     Route: 048
     Dates: start: 20100805, end: 20100811
  5. SERTRALINE HYDROCHLORIDE [Suspect]
     Route: 048
     Dates: start: 20100609, end: 20100707
  6. SERTRALINE HYDROCHLORIDE [Suspect]
     Route: 048
     Dates: start: 20100708, end: 20100712
  7. BIPERIDEN HYDROCHLORIDE TAB [Suspect]
     Route: 048
     Dates: start: 20100625, end: 20100709
  8. SEROQUEL XR [Suspect]
     Dosage: 400-600 MG
     Route: 048
     Dates: start: 20100622, end: 20100627
  9. SERTRALINE HYDROCHLORIDE [Suspect]
     Route: 048
     Dates: start: 20100805, end: 20100806
  10. DIAZEPAM [Concomitant]
     Route: 048
     Dates: start: 20100624, end: 20100715
  11. DIAZEPAM [Concomitant]
     Route: 048
     Dates: start: 20100720, end: 20100804
  12. SEROQUEL XR [Suspect]
     Route: 048
     Dates: start: 20100602, end: 20100622
  13. SEROQUEL XR [Suspect]
     Route: 048
     Dates: start: 20100628, end: 20100804
  14. DIAZEPAM [Concomitant]
     Route: 048
     Dates: start: 20100716, end: 20100719
  15. SERTRALINE HYDROCHLORIDE [Suspect]
     Route: 048
     Dates: start: 20100525, end: 20100608
  16. BIPERIDEN HYDROCHLORIDE TAB [Suspect]
     Route: 048
     Dates: start: 20100710

REACTIONS (1)
  - DELIRIUM [None]
